FAERS Safety Report 5377297-7 (Version None)
Quarter: 2007Q3

REPORT INFORMATION
  Report Type: 
  Country: None (occurrence: None)
  Receive Date: 20070703
  Receipt Date: 20070625
  Transmission Date: 20080115
  Serious: Yes (Hospitalization)
  Sender: FDA-Public Use
  Company Number: FR-ASTRAZENECA-2007CG00968

PATIENT
  Age: 24 Year
  Sex: Male

DRUGS (4)
  1. ENTOCORT EC [Suspect]
     Indication: CROHN'S DISEASE
     Route: 048
  2. AZATHIOPRINE SODIUM [Suspect]
     Indication: CROHN'S DISEASE
     Route: 048
     Dates: end: 20070411
  3. SOLU-MEDROL [Suspect]
     Indication: CROHN'S DISEASE
     Route: 048
  4. MODULEN [Concomitant]
     Indication: ENTERAL NUTRITION

REACTIONS (1)
  - CYTOMEGALOVIRUS INFECTION [None]
